FAERS Safety Report 11054039 (Version 3)
Quarter: 2015Q3

REPORT INFORMATION
  Report Type: Spontaneous
  Country: US (occurrence: US)
  Receive Date: 20150422
  Receipt Date: 20150714
  Transmission Date: 20151125
  Serious: Yes (Death, Hospitalization, Other)
  Sender: FDA-Public Use
  Company Number: US-AEGERION-AEGR001307

PATIENT

DRUGS (1)
  1. MYALEPT [Suspect]
     Active Substance: METRELEPTIN
     Indication: LIPODYSTROPHY ACQUIRED
     Dosage: 2.5 MG, QD
     Route: 058
     Dates: start: 20150120, end: 2015

REACTIONS (25)
  - Portal hypertension [Unknown]
  - Ascites [Unknown]
  - Hepatic encephalopathy [Unknown]
  - Coma [Unknown]
  - Pleural effusion [Unknown]
  - International normalised ratio increased [Unknown]
  - Peripheral swelling [Unknown]
  - Chronic hepatic failure [None]
  - Deep vein thrombosis [Unknown]
  - Generalised tonic-clonic seizure [Unknown]
  - Peritonitis bacterial [Unknown]
  - Gastric disorder [Unknown]
  - Ammonia increased [Unknown]
  - Agitation [Unknown]
  - Decubitus ulcer [Unknown]
  - Prothrombin time prolonged [Unknown]
  - Nausea [Unknown]
  - Diarrhoea [Unknown]
  - Therapy cessation [Not Recovered/Not Resolved]
  - Hepatic cirrhosis [Fatal]
  - Asthenia [Unknown]
  - Hiatus hernia [Unknown]
  - Lethargy [Unknown]
  - Mental status changes [Unknown]
  - Platelet count decreased [Unknown]

NARRATIVE: CASE EVENT DATE: 2015
